APPROVED DRUG PRODUCT: SALAGEN
Active Ingredient: PILOCARPINE HYDROCHLORIDE
Strength: 7.5MG
Dosage Form/Route: TABLET;ORAL
Application: N020237 | Product #002 | TE Code: AB
Applicant: ADVANZ PHARMA (US) CORP
Approved: Apr 18, 2003 | RLD: Yes | RS: Yes | Type: RX